FAERS Safety Report 5671307-5 (Version None)
Quarter: 2008Q1

REPORT INFORMATION
  Report Type: 
  Country: None (occurrence: None)
  Receive Date: 20080318
  Receipt Date: 20080311
  Transmission Date: 20080703
  Serious: Yes (Hospitalization, Disabling, Other)
  Sender: FDA-Public Use
  Company Number: CA-BRISTOL-MYERS SQUIBB COMPANY-14106728

PATIENT
  Age: 44 Year
  Sex: Female

DRUGS (5)
  1. SPRYCEL [Suspect]
     Indication: CHRONIC MYELOID LEUKAEMIA
     Route: 048
     Dates: start: 20080114, end: 20080117
  2. IMATINIB MESYLATE [Suspect]
     Indication: CHRONIC MYELOID LEUKAEMIA
  3. AVALIDE [Concomitant]
  4. CELEXA [Concomitant]
  5. ADVIL [Concomitant]

REACTIONS (2)
  - GANGRENE [None]
  - PERIPHERAL ISCHAEMIA [None]
